FAERS Safety Report 17372754 (Version 19)
Quarter: 2022Q4

REPORT INFORMATION
  Report Type: Report from Study
  Country: DE (occurrence: DE)
  Receive Date: 20200205
  Receipt Date: 20221222
  Transmission Date: 20230113
  Serious: Yes (Hospitalization, Other)
  Sender: FDA-Public Use
  Company Number: DE-ROCHE-2095674

PATIENT
  Age: 63 Year
  Sex: Female

DRUGS (22)
  1. BACLOFEN [Suspect]
     Active Substance: BACLOFEN
     Indication: Muscle spasticity
     Dosage: UNK
     Route: 065
     Dates: start: 201904, end: 2019
  2. OCREVUS [Suspect]
     Active Substance: OCRELIZUMAB
     Indication: Primary progressive multiple sclerosis
     Dosage: 600 MG,(197DAY), NEXT DOSE: 600, 08/MAY/2020
     Route: 042
     Dates: start: 20180304
  3. OCREVUS [Suspect]
     Active Substance: OCRELIZUMAB
     Dosage: (300 MG, NEXT DOSE: 600 MG, 4TH DOSE 8/MAY/2020)
     Route: 042
     Dates: start: 20180314
  4. OCREVUS [Suspect]
     Active Substance: OCRELIZUMAB
     Dosage: 600 MG(197 DAYS 4TH DOSE 08/MAY/2020: 600 MG)
     Route: 042
     Dates: start: 20180314
  5. OCREVUS [Suspect]
     Active Substance: OCRELIZUMAB
     Dosage: 600 MG(197 DAYS 4TH DOSE 08/MAY/2020: 600 MG)
     Route: 042
     Dates: start: 20200508
  6. OCREVUS [Suspect]
     Active Substance: OCRELIZUMAB
     Dosage: 600 MILLIGRAM (218 DAY)
     Route: 042
  7. OCREVUS [Suspect]
     Active Substance: OCRELIZUMAB
     Dosage: (600 MG,(197 DAYS),4TH DOSE 08/MAY/2020: 600MG)
     Route: 042
     Dates: start: 2021
  8. OCREVUS [Suspect]
     Active Substance: OCRELIZUMAB
     Dosage: 600 MG(NEXT INFUSION RECEIVED ON 29/JUL/2021)
     Route: 042
     Dates: start: 20210129
  9. OCREVUS [Suspect]
     Active Substance: OCRELIZUMAB
     Dosage: 600 MILLIGRAM
     Route: 042
     Dates: start: 20210910
  10. OCREVUS [Suspect]
     Active Substance: OCRELIZUMAB
     Dosage: 600 MILLIGRAM
     Route: 042
     Dates: start: 20210720
  11. COVID-19 VACCINE NOS [Suspect]
     Active Substance: COVID-19 VACCINE NOS
     Indication: COVID-19 prophylaxis
     Dosage: UNK
     Route: 065
     Dates: start: 20210428
  12. COMIRNATY [Suspect]
     Active Substance: TOZINAMERAN
     Indication: COVID-19 prophylaxis
     Dosage: UNK
     Route: 065
     Dates: start: 20210428
  13. TIZANIDINE [Concomitant]
     Active Substance: TIZANIDINE
     Dosage: 1 MILLIGRAM, QD
     Route: 065
  14. TIZANIDINE [Concomitant]
     Active Substance: TIZANIDINE
     Dosage: 1 MILLIGRAM, Q4H
     Route: 065
  15. LEVOTHYROXINE SODIUM [Concomitant]
     Active Substance: LEVOTHYROXINE SODIUM
     Dosage: 100 MICROGRAM, QD
     Route: 065
  16. METHYLPREDNISOLONE [Concomitant]
     Active Substance: METHYLPREDNISOLONE
     Indication: Premedication
     Dosage: UNK
     Route: 065
  17. ACETAMINOPHEN [Concomitant]
     Active Substance: ACETAMINOPHEN
     Indication: Premedication
     Dosage: UNK
     Route: 065
  18. DALFAMPRIDINE [Concomitant]
     Active Substance: DALFAMPRIDINE
     Dosage: 2 DOSAGE FORM, QD
     Route: 065
  19. DALFAMPRIDINE [Concomitant]
     Active Substance: DALFAMPRIDINE
     Dosage: 0.5 MILLIGRAM, QD
     Route: 065
  20. DALFAMPRIDINE [Concomitant]
     Active Substance: DALFAMPRIDINE
     Dosage: UNK, BID (1-0-1)
     Route: 065
  21. DALFAMPRIDINE [Concomitant]
     Active Substance: DALFAMPRIDINE
     Dosage: 0.5 MILLIGRAM (0.5 MILLIGRAM (1-0-1))
     Route: 065
  22. CITALOPRAM [Concomitant]
     Active Substance: CITALOPRAM HYDROBROMIDE
     Indication: Anxiety
     Dosage: UNK
     Route: 065

REACTIONS (42)
  - Spinal disorder [Unknown]
  - Fall [Unknown]
  - Balance disorder [Not Recovered/Not Resolved]
  - Nasopharyngitis [Recovering/Resolving]
  - Cervical vertebral fracture [Recovered/Resolved]
  - Bone cyst [Unknown]
  - Dental implantation [Recovered/Resolved]
  - Suicidal ideation [Recovering/Resolving]
  - Loss of consciousness [Recovered/Resolved]
  - Anxiety [Recovered/Resolved]
  - Sleep disorder [Recovering/Resolving]
  - Tooth infection [Recovered/Resolved]
  - Panic attack [Recovered/Resolved]
  - Blood blister [Recovered/Resolved]
  - Pain in extremity [Recovered/Resolved]
  - Injection site haematoma [Recovered/Resolved]
  - Asthenia [Recovering/Resolving]
  - Hypoaesthesia [Not Recovered/Not Resolved]
  - Trigeminal neuralgia [Not Recovered/Not Resolved]
  - Spondylolisthesis [Not Recovered/Not Resolved]
  - Arthralgia [Not Recovered/Not Resolved]
  - Sensory disturbance [Not Recovered/Not Resolved]
  - Skin laceration [Not Recovered/Not Resolved]
  - Peroneal nerve palsy [Not Recovered/Not Resolved]
  - Gait disturbance [Not Recovered/Not Resolved]
  - Feeling cold [Not Recovered/Not Resolved]
  - Joint stiffness [Unknown]
  - Haemorrhage [Recovered/Resolved]
  - Intervertebral disc protrusion [Recovered/Resolved]
  - Rhinorrhoea [Recovered/Resolved]
  - Pain [Recovered/Resolved]
  - Gastrointestinal infection [Not Recovered/Not Resolved]
  - Ligament injury [Not Recovered/Not Resolved]
  - Memory impairment [Recovered/Resolved]
  - Muscle spasticity [Recovering/Resolving]
  - Fatigue [Recovering/Resolving]
  - Urticaria [Recovered/Resolved]
  - Pollakiuria [Recovered/Resolved]
  - Abdominal pain upper [Recovered/Resolved]
  - Nausea [Recovered/Resolved]
  - Headache [Recovered/Resolved]
  - Depression [Recovered/Resolved]

NARRATIVE: CASE EVENT DATE: 20180315
